FAERS Safety Report 9335297 (Version 1)
Quarter: 2013Q2

REPORT INFORMATION
  Report Type: Spontaneous
  Country: US (occurrence: US)
  Receive Date: 20130606
  Receipt Date: 20130606
  Transmission Date: 20140414
  Serious: No
  Sender: FDA-Public Use
  Company Number: US-TEVA-408617USA

PATIENT
  Age: 39 Year
  Sex: Female
  Weight: 113.5 kg

DRUGS (2)
  1. PROAIR HFA [Suspect]
     Indication: ASTHMA
  2. QVAR [Concomitant]

REACTIONS (2)
  - Dyspnoea [Recovered/Resolved]
  - Gait disturbance [Recovered/Resolved]
